FAERS Safety Report 13469190 (Version 1)
Quarter: 2017Q2

REPORT INFORMATION
  Report Type: Report from Study
  Country: US (occurrence: US)
  Receive Date: 20170421
  Receipt Date: 20170421
  Transmission Date: 20170830
  Serious: Yes (Hospitalization, Other)
  Sender: FDA-Public Use
  Company Number: US-AMGEN-USASL2017058956

PATIENT
  Age: 62 Year
  Sex: Female

DRUGS (9)
  1. ENBREL [Suspect]
     Active Substance: ETANERCEPT
     Indication: RHEUMATOID ARTHRITIS
     Dosage: 50 MG, QWK
     Route: 065
     Dates: start: 2002
  2. ENBREL [Suspect]
     Active Substance: ETANERCEPT
     Dosage: 50 MG, QWK
     Route: 065
     Dates: start: 2017
  3. XELJANZ [Concomitant]
     Active Substance: TOFACITINIB CITRATE
  4. ORENCIA [Concomitant]
     Active Substance: ABATACEPT
  5. SIMPONI [Concomitant]
     Active Substance: GOLIMUMAB
  6. MTX [Concomitant]
     Active Substance: METHOTREXATE SODIUM
  7. LEUCOVORIN. [Concomitant]
     Active Substance: LEUCOVORIN
     Indication: ADVERSE EVENT
  8. RELAFEN [Concomitant]
     Active Substance: NABUMETONE
     Indication: RHEUMATOID ARTHRITIS
  9. HUMIRA [Concomitant]
     Active Substance: ADALIMUMAB

REACTIONS (11)
  - Decreased immune responsiveness [Not Recovered/Not Resolved]
  - Sjogren^s syndrome [Not Recovered/Not Resolved]
  - Pain in extremity [Recovered/Resolved]
  - Staphylococcal infection [Recovered/Resolved]
  - Influenza like illness [Recovered/Resolved]
  - Arthralgia [Recovered/Resolved]
  - Disability [Recovered/Resolved]
  - Psoas abscess [Recovered/Resolved]
  - Pyrexia [Recovered/Resolved]
  - Infection [Recovered/Resolved]
  - Oropharyngeal pain [Recovered/Resolved]

NARRATIVE: CASE EVENT DATE: 2002
